FAERS Safety Report 4863283-X (Version None)
Quarter: 2005Q4

REPORT INFORMATION
  Report Type: 
  Country: None (occurrence: None)
  Receive Date: 20051222
  Receipt Date: 20051213
  Transmission Date: 20060501
  Serious: Yes (Other)
  Sender: FDA-Public Use
  Company Number: CO-JNJFOC-20051203320

PATIENT
  Sex: Male
  Weight: 58 kg

DRUGS (5)
  1. REMICADE [Suspect]
     Dosage: THE PATIENT RECEIVED A TOTAL OF THREE INFLIXIMAB INFUSIONS WITHIN 41 DAYS.
     Route: 042
  2. REMICADE [Suspect]
     Route: 042
  3. REMICADE [Suspect]
     Indication: ANKYLOSING SPONDYLITIS
     Route: 042
  4. METHOTREXATE [Concomitant]
     Indication: ANKYLOSING SPONDYLITIS
     Route: 048
  5. NAPROXEN [Concomitant]
     Indication: ANKYLOSING SPONDYLITIS
     Route: 048

REACTIONS (1)
  - PULMONARY TUBERCULOSIS [None]
